FAERS Safety Report 4916389-0 (Version None)
Quarter: 2006Q1

REPORT INFORMATION
  Report Type: 
  Country: None (occurrence: None)
  Receive Date: 20060217
  Receipt Date: 20051019
  Transmission Date: 20060701
  Serious: Yes (Hospitalization, Other)
  Sender: FDA-Public Use
  Company Number: US-MERCK-0510USA08239

PATIENT
  Age: 60 Year
  Sex: Male
  Weight: 65 kg

DRUGS (2)
  1. VIOXX [Suspect]
     Route: 048
     Dates: start: 20031101, end: 20040101
  2. VIOXX [Suspect]
     Route: 048
     Dates: end: 20030514

REACTIONS (18)
  - ANAEMIA [None]
  - CHEST PAIN [None]
  - CHILLS [None]
  - CONFUSIONAL STATE [None]
  - COUGH [None]
  - DECREASED APPETITE [None]
  - DIZZINESS [None]
  - DRUG INEFFECTIVE [None]
  - HAEMOPTYSIS [None]
  - HYPERTENSION [None]
  - LIPIDS INCREASED [None]
  - MYOCARDIAL INFARCTION [None]
  - NAUSEA [None]
  - PALPITATIONS [None]
  - PHARYNGOLARYNGEAL PAIN [None]
  - PYREXIA [None]
  - SKIN LESION [None]
  - SUPRAVENTRICULAR TACHYCARDIA [None]
